FAERS Safety Report 21921369 (Version 1)
Quarter: 2023Q1

REPORT INFORMATION
  Report Type: Spontaneous
  Country: CN (occurrence: CN)
  Receive Date: 20230127
  Receipt Date: 20230127
  Transmission Date: 20230418
  Serious: Yes (Life-Threatening, Hospitalization, Other)
  Sender: FDA-Public Use
  Company Number: CN-UNITED THERAPEUTICS-UNT-2023-001984

PATIENT
  Age: 28 Day
  Sex: Male
  Weight: 3.26 kg

DRUGS (1)
  1. REMODULIN [Suspect]
     Active Substance: TREPROSTINIL
     Indication: Pulmonary arterial pressure increased
     Dosage: UNK, CONTINUING
     Route: 041

REACTIONS (4)
  - Cardiac procedure complication [Unknown]
  - Procedural hypotension [Recovering/Resolving]
  - Hypoxia [Recovering/Resolving]
  - Right ventricular failure [Recovering/Resolving]
